FAERS Safety Report 15361649 (Version 1)
Quarter: 2018Q3

REPORT INFORMATION
  Report Type: Spontaneous
  Country: US (occurrence: US)
  Receive Date: 20180831
  Receipt Date: 20180831
  Transmission Date: 20181010
  Serious: Yes (Death)
  Sender: FDA-Public Use
  Company Number: None

PATIENT
  Age: 54 Year
  Sex: Female

DRUGS (13)
  1. ALPRAZOLAM 0.25MG TAB [Concomitant]
     Dates: start: 20170927
  2. FLUCONAZOLE 150MG TAB [Concomitant]
     Active Substance: FLUCONAZOLE
     Dates: start: 20180709
  3. OXYCODONE 5MG TAB [Concomitant]
     Dates: start: 20170921
  4. POLYETHLENE GLYCOL POWDER [Concomitant]
     Dates: start: 20171127
  5. CAPECITABINE 500MG TABLETS [Suspect]
     Active Substance: CAPECITABINE
     Indication: BREAST CANCER
     Route: 048
     Dates: start: 20180607
  6. DIAZEPAM 5MG TAB [Concomitant]
     Dates: start: 20170827
  7. OXYCONTIN 30MG CR TAB [Concomitant]
     Dates: start: 20170824
  8. ASPIRIN 325MG TAB [Concomitant]
     Dates: start: 20180709
  9. INBRANCE 125MG CAP [Concomitant]
     Dates: start: 20180526
  10. LYRICA 150MG CAP [Concomitant]
     Dates: start: 20171222
  11. ATENOLOL 50MG [Concomitant]
     Active Substance: ATENOLOL
     Dates: start: 20170711
  12. FLUOXETINE 20MG CAP [Concomitant]
     Dates: start: 20170905
  13. LEFLUNOMIDE 20MG TAB [Concomitant]
     Dates: start: 20180803

REACTIONS (1)
  - Death [None]
